FAERS Safety Report 15222697 (Version 1)
Quarter: 2018Q3

REPORT INFORMATION
  Report Type: Spontaneous
  Country: RO (occurrence: RO)
  Receive Date: 20180731
  Receipt Date: 20180731
  Transmission Date: 20181010
  Serious: Yes (Other)
  Sender: FDA-Public Use
  Company Number: PHHY2018RO051547

PATIENT
  Age: 1 Year
  Sex: Male

DRUGS (1)
  1. DEFERASIROX [Suspect]
     Active Substance: DEFERASIROX
     Indication: PEARSON^S SYNDROME
     Dosage: 1 DF, QD
     Route: 065

REACTIONS (7)
  - General physical health deterioration [Unknown]
  - Disease progression [Unknown]
  - Pearson^s syndrome [Unknown]
  - Gastrointestinal haemorrhage [Unknown]
  - Hepatic failure [Unknown]
  - Blood disorder [Unknown]
  - Sepsis [Unknown]
